FAERS Safety Report 5865236-1 (Version None)
Quarter: 2008Q3

REPORT INFORMATION
  Report Type: 
  Country: None (occurrence: None)
  Receive Date: 20080829
  Receipt Date: 20080822
  Transmission Date: 20090109
  Serious: Yes (Hospitalization, Other)
  Sender: FDA-Public Use
  Company Number: B0534809A

PATIENT
  Age: 17 Year
  Sex: Male

DRUGS (1)
  1. CEFUROXIME [Suspect]
     Indication: UPPER RESPIRATORY TRACT INFECTION
     Dosage: 500MG SINGLE DOSE
     Route: 065
     Dates: start: 20080801, end: 20080801

REACTIONS (7)
  - DENGUE FEVER [None]
  - DRUG HYPERSENSITIVITY [None]
  - HAEMATURIA [None]
  - HAEMOPTYSIS [None]
  - KIDNEY INFECTION [None]
  - LIVER INJURY [None]
  - RASH [None]
